FAERS Safety Report 9020022 (Version 1)
Quarter: 2013Q1

REPORT INFORMATION
  Report Type: Spontaneous
  Country: US (occurrence: US)
  Receive Date: 20130119
  Receipt Date: 20130119
  Transmission Date: 20140127
  Serious: No
  Sender: FDA-Public Use
  Company Number: US-ALLERGAN-1211250US

PATIENT
  Age: 58 None
  Sex: Female

DRUGS (10)
  1. BOTOX COSMETIC [Suspect]
     Indication: SKIN WRINKLING
     Dosage: 37 UNITS, SINGLE
     Route: 030
     Dates: start: 201204, end: 201204
  2. BOTOX COSMETIC [Suspect]
     Indication: SKIN WRINKLING
  3. BOTOX COSMETIC [Suspect]
     Indication: SKIN WRINKLING
  4. JUVEDERM [Suspect]
     Indication: SKIN WRINKLING
     Dosage: UNK, SINGLE
     Route: 030
     Dates: start: 201204, end: 201204
  5. ACIPHEX [Concomitant]
     Indication: GASTROOESOPHAGEAL REFLUX DISEASE
     Dosage: UNK UNK, BID
     Dates: start: 20120815
  6. ALBUTEROL                          /00139501/ [Concomitant]
     Indication: ASTHMA
  7. ADVAIR [Concomitant]
     Indication: ASTHMA
  8. NEXIUM                             /01479302/ [Concomitant]
     Indication: GASTROOESOPHAGEAL REFLUX DISEASE
  9. PREDNISONE [Concomitant]
     Indication: INFLAMMATION
  10. OMEPRAZOLE [Concomitant]
     Indication: GASTROOESOPHAGEAL REFLUX DISEASE

REACTIONS (10)
  - Throat tightness [Unknown]
  - Pharyngeal inflammation [Recovering/Resolving]
  - Laryngeal inflammation [Recovering/Resolving]
  - Pneumonia [Unknown]
  - Bronchitis [Unknown]
  - Cough [Unknown]
  - Aphonia [Recovering/Resolving]
  - Dysphonia [Recovering/Resolving]
  - Drug administered at inappropriate site [Unknown]
  - Off label use [Unknown]
